FAERS Safety Report 5261712-3 (Version None)
Quarter: 2007Q1

REPORT INFORMATION
  Report Type: 
  Country: None (occurrence: None)
  Receive Date: 20061208
  Receipt Date: 20060525
  Transmission Date: 20070707
  Serious: Yes (Other)
  Sender: FDA-Public Use
  Company Number: USA-2006-0024290

PATIENT
  Age: 47 Year
  Sex: Male

DRUGS (4)
  1. OXYCODONE HCL [Suspect]
     Indication: PAIN
     Dosage: 80 MG, TID, ORAL
     Route: 048
  2. DURAGESIC-100 [Suspect]
     Indication: DRUG USE FOR UNKNOWN INDICATION
  3. PREDNISOLONE [Concomitant]
  4. XANAX [Concomitant]

REACTIONS (3)
  - DRUG DEPENDENCE [None]
  - HEPATIC ENZYME INCREASED [None]
  - MUSCLE SPASMS [None]
